FAERS Safety Report 20388985 (Version 1)
Quarter: 2022Q1

REPORT INFORMATION
  Report Type: Spontaneous
  Country: US (occurrence: US)
  Receive Date: 20220128
  Receipt Date: 20220128
  Transmission Date: 20220423
  Serious: Yes (Other)
  Sender: FDA-Public Use
  Company Number: US-CELLTRION INC.-2022US000670

PATIENT

DRUGS (1)
  1. INFLECTRA [Suspect]
     Active Substance: INFLIXIMAB-DYYB
     Indication: Psoriatic arthropathy
     Dosage: 500MG EVERY 8 WEEKS INTRAVENOUSLY
     Route: 042
     Dates: start: 202105

REACTIONS (3)
  - Treatment delayed [Unknown]
  - Product distribution issue [Unknown]
  - Overdose [Unknown]
